FAERS Safety Report 6315952-2 (Version None)
Quarter: 2009Q3

REPORT INFORMATION
  Report Type: 
  Country: None (occurrence: None)
  Receive Date: 20090820
  Receipt Date: 20080717
  Transmission Date: 20100115
  Serious: No
  Sender: FDA-Public Use
  Company Number: US-KINGPHARMUSA00001-K200800846

PATIENT
  Sex: Female
  Weight: 51.701 kg

DRUGS (3)
  1. CYTOMEL [Suspect]
     Indication: HYPOTHYROIDISM
     Dosage: 5 MCG, QD
     Route: 048
     Dates: start: 20030101
  2. CYTOMEL [Suspect]
     Dosage: 10 MCG, QD
     Route: 048
  3. THYROID COMPLEX WITH L-TYROSINE [Concomitant]
     Indication: HYPOTHYROIDISM
     Dosage: UNK, QD
     Route: 048

REACTIONS (3)
  - HYPERPARATHYROIDISM [None]
  - TREMOR [None]
  - WEIGHT DECREASED [None]
